FAERS Safety Report 5084227-4 (Version None)
Quarter: 2006Q3

REPORT INFORMATION
  Report Type: 
  Country: None (occurrence: None)
  Receive Date: 20060821
  Receipt Date: 20060206
  Transmission Date: 20061208
  Serious: No
  Sender: FDA-Public Use
  Company Number: US-BRISTOL-MYERS SQUIBB COMPANY-13273727

PATIENT
  Age: 47 Year
  Sex: Female
  Weight: 54 kg

DRUGS (3)
  1. GATIFLOXACIN [Suspect]
     Indication: SINUSITIS
     Dates: start: 20060127
  2. NAPROSYN [Concomitant]
     Dates: start: 20060127
  3. PREVACID [Concomitant]

REACTIONS (1)
  - COUGH [None]
